FAERS Safety Report 7487649-7 (Version None)
Quarter: 2011Q2

REPORT INFORMATION
  Report Type: 
  Country: None (occurrence: None)
  Receive Date: 20110518
  Receipt Date: 20090327
  Transmission Date: 20111010
  Serious: Yes (Death, Other)
  Sender: FDA-Public Use
  Company Number: US-BAYER-200917126NA

PATIENT
  Age: 74 Year
  Sex: Male
  Weight: 94.331 kg

DRUGS (5)
  1. ACETYLSALICYLIC ACID SRT [Concomitant]
     Dosage: 325 MG, QD
     Route: 048
     Dates: start: 20030602
  2. ESMOLOL [Concomitant]
     Route: 042
  3. PROPOFOL [Concomitant]
     Route: 042
  4. ATENOLOL [Concomitant]
     Dosage: 50 MG, QD
     Route: 048
     Dates: start: 20030602
  5. TRASYLOL [Suspect]
     Indication: CORONARY ARTERY BYPASS
     Dosage: BOLUS, FOLLOWED BY 25 ML PER HOUR INFUSION
     Route: 042
     Dates: start: 20030606, end: 20030606

REACTIONS (11)
  - ANHEDONIA [None]
  - EMOTIONAL DISTRESS [None]
  - DEPRESSION [None]
  - INJURY [None]
  - UNEVALUABLE EVENT [None]
  - FEAR [None]
  - MENTAL IMPAIRMENT [None]
  - DEATH [None]
  - PAIN [None]
  - RENAL FAILURE [None]
  - ANXIETY [None]
